FAERS Safety Report 9863959 (Version 2)
Quarter: 2014Q1

REPORT INFORMATION
  Report Type: Spontaneous
  Country: IT (occurrence: IT)
  Receive Date: 20140203
  Receipt Date: 20140319
  Transmission Date: 20141002
  Serious: Yes (Hospitalization)
  Sender: FDA-Public Use
  Company Number: IT-WATSON-2014-01184

PATIENT
  Age: 80 Year
  Sex: Female

DRUGS (7)
  1. ATENOLOL (UNKNOWN) [Suspect]
     Indication: HYPERTENSION
     Dosage: 25 MG/DIE, QD
     Route: 048
     Dates: start: 20121015, end: 20131015
  2. CARDIRENE [Concomitant]
  3. FOSIPRES [Concomitant]
  4. PANTOPAN [Concomitant]
  5. ALIFLUS [Concomitant]
  6. TACHIPIRINA [Concomitant]
  7. LORAZEPAM [Concomitant]
     Dosage: 2.5 MG, UNK
     Route: 048

REACTIONS (3)
  - Atrioventricular block second degree [Recovered/Resolved with Sequelae]
  - Dyspnoea [Recovered/Resolved with Sequelae]
  - Asthenia [Recovered/Resolved with Sequelae]
